FAERS Safety Report 8982546 (Version 1)
Quarter: 2012Q4

REPORT INFORMATION
  Report Type: 
  Country: US (occurrence: US)
  Receive Date: 20121212
  Receipt Date: 20121212
  Transmission Date: 20130627
  Serious: Yes (Hospitalization)
  Sender: FDA-Public Use
  Company Number: US-ASTELLAS-1120706

PATIENT
  Age: 75 Year
  Sex: Male

DRUGS (2)
  1. TARCEVA [Suspect]
     Indication: NON-SMALL CELL LUNG CANCER METASTATIC
     Route: 048
     Dates: start: 20070330, end: 20070411
  2. TARCEVA [Suspect]
     Route: 065
     Dates: start: 200704, end: 20070509

REACTIONS (2)
  - Lung infection [Unknown]
  - Pneumonia [Recovered/Resolved]
